FAERS Safety Report 23363429 (Version 2)
Quarter: 2024Q1

REPORT INFORMATION
  Report Type: Spontaneous
  Country: US (occurrence: US)
  Receive Date: 20240103
  Receipt Date: 20240118
  Transmission Date: 20240410
  Serious: Yes (Other)
  Sender: FDA-Public Use
  Company Number: US-BAUSCHBL-2023BNL013762

PATIENT
  Sex: Female

DRUGS (5)
  1. TIMOLOL [Suspect]
     Active Substance: TIMOLOL
     Indication: Glaucoma
     Route: 061
  2. TIMOLOL [Suspect]
     Active Substance: TIMOLOL
  3. LATANOPROSTENE BUNOD [Suspect]
     Active Substance: LATANOPROSTENE BUNOD
     Indication: Glaucoma
     Route: 065
  4. DORZOLAMIDE AND TIMOLOL [Suspect]
     Active Substance: DORZOLAMIDE HYDROCHLORIDE\TIMOLOL MALEATE
     Indication: Glaucoma
     Route: 061
  5. BIMATOPROST [Suspect]
     Active Substance: BIMATOPROST
     Indication: Glaucoma
     Route: 061

REACTIONS (5)
  - Serous retinal detachment [Recovering/Resolving]
  - Choroidal haemangioma [Unknown]
  - Drug intolerance [Unknown]
  - Adverse drug reaction [Unknown]
  - Therapy non-responder [Unknown]
